FAERS Safety Report 18163420 (Version 1)
Quarter: 2020Q3

REPORT INFORMATION
  Report Type: Report from Study
  Country: DE (occurrence: DE)
  Receive Date: 20200818
  Receipt Date: 20200818
  Transmission Date: 20201103
  Serious: Yes (Death, Life-Threatening, Hospitalization)
  Sender: FDA-Public Use
  Company Number: DE-BAXTER-2020BAX016513

PATIENT
  Age: 75 Year
  Sex: Male
  Weight: 77.9 kg

DRUGS (60)
  1. NOXAFIL [Concomitant]
     Active Substance: POSACONAZOLE
     Indication: PROPHYLAXIS
     Dosage: NOT PROVIDED
     Route: 065
  2. ETOPOSIDE. [Concomitant]
     Active Substance: ETOPOSIDE
     Indication: PLASMA CELL MYELOMA
     Dosage: DAYS 4?7
     Route: 065
     Dates: start: 201911
  3. DOXORUBICIN [Concomitant]
     Active Substance: DOXORUBICIN
     Dosage: DAYS 1?4
     Route: 065
     Dates: start: 201901
  4. DEXAMETHASONE. [Concomitant]
     Active Substance: DEXAMETHASONE
     Indication: NEUROTOXICITY
     Route: 065
     Dates: start: 20200517, end: 20200517
  5. DEXAMETHASONE. [Concomitant]
     Active Substance: DEXAMETHASONE
     Dosage: DAYS 1?4,8,15,16
     Route: 065
     Dates: start: 202002
  6. VELCADE [Concomitant]
     Active Substance: BORTEZOMIB
     Dosage: DAYS 1 AND 6
     Route: 065
     Dates: start: 201811
  7. THALIDOMIDE [Concomitant]
     Active Substance: THALIDOMIDE
     Dosage: D1?5
     Route: 048
     Dates: start: 20200416
  8. ETOPOSIDE. [Concomitant]
     Active Substance: ETOPOSIDE
     Dosage: D1?3
     Route: 065
     Dates: start: 20200416
  9. VELCADE [Concomitant]
     Active Substance: BORTEZOMIB
     Dosage: DAYS 1, 4
     Route: 065
     Dates: start: 201903
  10. FLUDARABINE [Suspect]
     Active Substance: FLUDARABINE PHOSPHATE
     Indication: PLASMA CELL MYELOMA
     Dosage: INJECTION FOR INFUSION, LDC
     Route: 042
     Dates: start: 20200507, end: 20200509
  11. MEROPENEM. [Concomitant]
     Active Substance: MEROPENEM
     Route: 065
     Dates: start: 20200518
  12. DEXAMETHASONE. [Concomitant]
     Active Substance: DEXAMETHASONE
     Dosage: NOT PROVIDED
     Route: 065
     Dates: start: 20200513, end: 20200514
  13. DEXAMETHASONE. [Concomitant]
     Active Substance: DEXAMETHASONE
     Dosage: NOT PROVIDED
     Route: 065
     Dates: start: 201706, end: 201707
  14. DEXAMETHASONE. [Concomitant]
     Active Substance: DEXAMETHASONE
     Dosage: D1?4
     Route: 065
     Dates: start: 20200416
  15. DEXAMETHASONE. [Concomitant]
     Active Substance: DEXAMETHASONE
     Dosage: NOT PROVIDED
     Route: 065
     Dates: start: 20200512, end: 20200512
  16. THALIDOMIDE [Concomitant]
     Active Substance: THALIDOMIDE
     Dosage: DAYS 1?21
     Route: 048
     Dates: start: 201912
  17. MEROPENEM. [Concomitant]
     Active Substance: MEROPENEM
     Dosage: CRS THERAPY
     Route: 065
     Dates: start: 20200521
  18. RASBURICASE [Concomitant]
     Active Substance: RASBURICASE
     Indication: PROPHYLAXIS
     Dosage: NOT PROVIDED
     Route: 065
  19. CISPLATIN. [Concomitant]
     Active Substance: CISPLATIN
     Indication: PLASMA CELL MYELOMA
     Dosage: D1?4
     Route: 065
     Dates: start: 20200416
  20. DOXORUBICIN [Concomitant]
     Active Substance: DOXORUBICIN
     Dosage: DAYS 1?4
     Route: 065
     Dates: start: 201903
  21. VELCADE [Concomitant]
     Active Substance: BORTEZOMIB
     Dosage: DAYS 1, 4, 10, 14
     Route: 065
     Dates: start: 201901
  22. VELCADE [Concomitant]
     Active Substance: BORTEZOMIB
     Dosage: D1, 8, 11
     Route: 065
     Dates: start: 20200325
  23. VELCADE [Concomitant]
     Active Substance: BORTEZOMIB
     Dosage: DAYS 1, 4
     Route: 065
     Dates: start: 201907
  24. ENDOXAN 1G [Suspect]
     Active Substance: CYCLOPHOSPHAMIDE
     Dosage: INJECTION FOR INFUSION, DAYS 4, 5, 7,
     Route: 065
     Dates: start: 202002
  25. LEVETIRACETAM. [Concomitant]
     Active Substance: LEVETIRACETAM
     Indication: PROPHYLAXIS
     Dosage: NOT PROVIDED
     Route: 065
  26. G?CSF [Concomitant]
     Active Substance: GRANULOCYTE COLONY-STIMULATING FACTOR NOS
     Dosage: CRS THERAPY
     Route: 065
     Dates: start: 20200521
  27. DOXORUBICIN [Concomitant]
     Active Substance: DOXORUBICIN
     Dosage: DAYS 1?4
     Route: 065
     Dates: start: 201909
  28. DEXAMETHASONE. [Concomitant]
     Active Substance: DEXAMETHASONE
     Dosage: DAYS 1?4,7,15,16
     Route: 065
     Dates: start: 201911
  29. PIPERACILLIN/TAZOBACTAM [Concomitant]
     Active Substance: PIPERACILLIN SODIUM\TAZOBACTAM SODIUM
     Indication: PYREXIA
     Dosage: NOT PROVIDED
     Route: 065
     Dates: start: 20200512, end: 20200512
  30. NAHCO3 [Concomitant]
     Active Substance: SODIUM BICARBONATE
     Indication: PRODUCT USED FOR UNKNOWN INDICATION
     Dosage: NOT PROVIDED
     Route: 065
  31. ETOPOSIDE. [Concomitant]
     Active Substance: ETOPOSIDE
     Dosage: DAYS 4?7
     Route: 065
     Dates: start: 201912
  32. DOXORUBICIN [Concomitant]
     Active Substance: DOXORUBICIN
     Dosage: DAYS 1?4
     Route: 065
     Dates: start: 201907
  33. VELCADE [Concomitant]
     Active Substance: BORTEZOMIB
     Indication: PLASMA CELL MYELOMA
     Dosage: NOT PROVIDED
     Route: 065
     Dates: start: 201706, end: 201707
  34. THALIDOMIDE [Concomitant]
     Active Substance: THALIDOMIDE
     Indication: PLASMA CELL MYELOMA
     Dosage: DAYS 1?21
     Route: 048
     Dates: start: 201911
  35. ENDOXAN 1G [Suspect]
     Active Substance: CYCLOPHOSPHAMIDE
     Indication: PLASMA CELL MYELOMA
     Dosage: INJECTION FOR INFUSION, FIRST LINE CYCLICAL THERAPY WITH 3 CYCLES, NOT PROVIDED
     Route: 065
     Dates: start: 201706, end: 201707
  36. ENDOXAN 1G [Suspect]
     Active Substance: CYCLOPHOSPHAMIDE
     Dosage: INJECTION FOR INFUSION, SECOND BRIDGING THERAPY OF VDT?PACE, D1?3
     Route: 065
     Dates: start: 20200416
  37. ENDOXAN 1G [Suspect]
     Active Substance: CYCLOPHOSPHAMIDE
     Dosage: INJECTION FOR INFUSION, LDC
     Route: 042
     Dates: start: 20200507, end: 20200509
  38. ENDOXAN 1G [Suspect]
     Active Substance: CYCLOPHOSPHAMIDE
     Dosage: INJECTION FOR INFUSION
     Route: 065
     Dates: start: 20200519, end: 20200519
  39. NOXAFIL [Concomitant]
     Active Substance: POSACONAZOLE
     Dosage: CRS THERAPY
     Route: 065
     Dates: start: 20200521
  40. G?CSF [Concomitant]
     Active Substance: GRANULOCYTE COLONY-STIMULATING FACTOR NOS
     Route: 065
     Dates: start: 20200518
  41. ETOPOSIDE. [Concomitant]
     Active Substance: ETOPOSIDE
     Dosage: DAYS 4,5,7
     Route: 065
     Dates: start: 202002
  42. DEXAMETHASONE. [Concomitant]
     Active Substance: DEXAMETHASONE
     Dosage: D1, 8
     Route: 065
     Dates: start: 20200325
  43. DEXAMETHASONE. [Concomitant]
     Active Substance: DEXAMETHASONE
     Dosage: DAYS 1?8
     Route: 065
     Dates: start: 201811
  44. DEXAMETHASONE. [Concomitant]
     Active Substance: DEXAMETHASONE
     Dosage: DAYS 0, 1, 1, 4/5, 10/11, 14/15
     Route: 065
     Dates: start: 201901
  45. VELCADE [Concomitant]
     Active Substance: BORTEZOMIB
     Dosage: DAYS 1, 4, 10, 14
     Route: 065
     Dates: start: 201902
  46. VELCADE [Concomitant]
     Active Substance: BORTEZOMIB
     Dosage: DAYS 1, 4
     Route: 065
     Dates: start: 201909
  47. THALIDOMIDE [Concomitant]
     Active Substance: THALIDOMIDE
     Dosage: DAYS 1?21
     Route: 048
     Dates: start: 202002
  48. ENDOXAN 1G [Suspect]
     Active Substance: CYCLOPHOSPHAMIDE
     Indication: CYTOKINE RELEASE SYNDROME
     Dosage: INJECTION FOR INFUSION, DAYS 4?7
     Route: 065
     Dates: start: 20191107
  49. ENDOXAN 1G [Suspect]
     Active Substance: CYCLOPHOSPHAMIDE
     Indication: NEUROTOXICITY
     Dosage: INJECTION FOR INFUSION, DAYS 4?7
     Route: 065
     Dates: start: 201912
  50. MEROPENEM. [Concomitant]
     Active Substance: MEROPENEM
     Indication: PROPHYLAXIS
     Dosage: NOT PROVIDED
     Route: 065
     Dates: start: 20200517
  51. NOXAFIL [Concomitant]
     Active Substance: POSACONAZOLE
     Route: 065
     Dates: start: 20200518
  52. G?CSF [Concomitant]
     Active Substance: GRANULOCYTE COLONY-STIMULATING FACTOR NOS
     Indication: PRODUCT USED FOR UNKNOWN INDICATION
     Dosage: NOT PROVIDED
     Route: 065
  53. DOXORUBICIN [Concomitant]
     Active Substance: DOXORUBICIN
     Indication: PLASMA CELL MYELOMA
     Dosage: DAYS 3?6
     Route: 065
     Dates: start: 201811
  54. DOXORUBICIN [Concomitant]
     Active Substance: DOXORUBICIN
     Dosage: D1?3
     Route: 065
     Dates: start: 20200416
  55. DOXORUBICIN [Concomitant]
     Active Substance: DOXORUBICIN
     Dosage: DAYS 1?4
     Route: 065
     Dates: start: 201902
  56. DEXAMETHASONE. [Concomitant]
     Active Substance: DEXAMETHASONE
     Indication: PLASMA CELL MYELOMA
     Route: 065
     Dates: start: 20200518, end: 20200518
  57. DEXAMETHASONE. [Concomitant]
     Active Substance: DEXAMETHASONE
     Dosage: DAYS 0, 1, 1, 4/5, 10/11, 14/15
     Route: 065
     Dates: start: 201902
  58. DEXAMETHASONE. [Concomitant]
     Active Substance: DEXAMETHASONE
     Dosage: DAYS 1?4,8,15,16,
     Route: 065
     Dates: start: 201912
  59. VELCADE [Concomitant]
     Active Substance: BORTEZOMIB
     Dosage: D1, 4
     Route: 065
     Dates: start: 20200416
  60. VIMPAT [Concomitant]
     Active Substance: LACOSAMIDE
     Indication: SEIZURE PROPHYLAXIS
     Dosage: NOT PROVIDED
     Route: 065
     Dates: start: 20200513

REACTIONS (4)
  - Neurotoxicity [Not Recovered/Not Resolved]
  - Cytokine release syndrome [Fatal]
  - Haemophagocytic lymphohistiocytosis [Not Recovered/Not Resolved]
  - Fungal sepsis [Fatal]

NARRATIVE: CASE EVENT DATE: 20200512
